FAERS Safety Report 5595222-0 (Version None)
Quarter: 2008Q1

REPORT INFORMATION
  Report Type: 
  Country: None (occurrence: None)
  Receive Date: 20080117
  Receipt Date: 20080107
  Transmission Date: 20080703
  Serious: Yes (Hospitalization)
  Sender: FDA-Public Use
  Company Number: CA-PFIZER INC-2008000486

PATIENT
  Sex: Female
  Weight: 79 kg

DRUGS (6)
  1. SU-011,248 [Suspect]
     Indication: METASTATIC RENAL CELL CARCINOMA
     Route: 048
  2. METOPROLOL TARTRATE [Concomitant]
     Route: 048
  3. HYDROCHLOROTHIAZIDE [Concomitant]
     Route: 048
  4. RABEPRAZOLE SODIUM [Concomitant]
     Route: 048
  5. CALCIUM GLUCONATE [Concomitant]
     Route: 048
  6. VITAMIN CAP [Concomitant]
     Route: 048

REACTIONS (10)
  - ABDOMINAL PAIN LOWER [None]
  - ASTHENIA [None]
  - CHEST PAIN [None]
  - DYSPNOEA [None]
  - INSOMNIA [None]
  - MALAISE [None]
  - OESOPHAGITIS [None]
  - ORAL INTAKE REDUCED [None]
  - PRODUCTIVE COUGH [None]
  - TROPONIN INCREASED [None]
